FAERS Safety Report 20615602 (Version 1)
Quarter: 2022Q1

REPORT INFORMATION
  Report Type: Spontaneous
  Country: JP (occurrence: JP)
  Receive Date: 20220321
  Receipt Date: 20220321
  Transmission Date: 20220424
  Serious: Yes (Death)
  Sender: FDA-Public Use
  Company Number: JP-CHUGAI-2021025539

PATIENT
  Age: 75 Year
  Sex: Female
  Weight: 42.5 kg

DRUGS (4)
  1. TECENTRIQ [Suspect]
     Active Substance: ATEZOLIZUMAB
     Indication: Hepatocellular carcinoma
     Dosage: 1200 MILLIGRAM, ONCE/3WEEKS
     Route: 041
     Dates: start: 20201218, end: 20211022
  2. AVASTIN [Suspect]
     Active Substance: BEVACIZUMAB
     Indication: Hepatocellular carcinoma
     Dosage: 600 MILLIGRAM, ONCE/3WEEKS
     Route: 041
     Dates: start: 20201218, end: 20211022
  3. ENTECAVIR [Concomitant]
     Active Substance: ENTECAVIR
     Dosage: UNK
     Route: 065
     Dates: start: 20170201
  4. URSODIOL [Concomitant]
     Active Substance: URSODIOL
     Dosage: UNK
     Route: 065
     Dates: start: 20170201

REACTIONS (2)
  - Cardiac failure [Fatal]
  - Disease progression [Fatal]

NARRATIVE: CASE EVENT DATE: 20211026
